FAERS Safety Report 20773551 (Version 1)
Quarter: 2022Q2

REPORT INFORMATION
  Report Type: Spontaneous
  Country: NL (occurrence: NL)
  Receive Date: 20220502
  Receipt Date: 20220502
  Transmission Date: 20220721
  Serious: Yes (Hospitalization)
  Sender: FDA-Public Use
  Company Number: None

PATIENT
  Age: 45 Year
  Sex: Male
  Weight: 66 kg

DRUGS (4)
  1. ARTEMETHER\LUMEFANTRINE [Suspect]
     Active Substance: ARTEMETHER\LUMEFANTRINE
     Indication: Malaria
     Dosage: 4 DOSAGE FORM, QD (1X PER DAG 4 TABLETTEN)
     Route: 065
     Dates: start: 202203
  2. TENOFOVIR DISOPROXIL [Concomitant]
     Active Substance: TENOFOVIR DISOPROXIL
     Indication: Product used for unknown indication
     Dosage: UNK TABLET, 245 MG (MILLIGRAM)
     Route: 065
  3. LAMIVUDINE\ZIDOVUDINE [Concomitant]
     Active Substance: LAMIVUDINE\ZIDOVUDINE
     Indication: Product used for unknown indication
     Dosage: OMHULDE TABLET, 150/300 MG (MILLIGRAM)
     Route: 065
  4. LOPINAVIR\RITONAVIR [Concomitant]
     Active Substance: LOPINAVIR\RITONAVIR
     Indication: Product used for unknown indication
     Dosage: TABLET, 200/50 MG (MILLIGRAM)
     Route: 065

REACTIONS (1)
  - Coombs negative haemolytic anaemia [Recovering/Resolving]

NARRATIVE: CASE EVENT DATE: 20220404
